FAERS Safety Report 23017583 (Version 3)
Quarter: 2023Q4

REPORT INFORMATION
  Report Type: Spontaneous
  Country: FR (occurrence: FR)
  Receive Date: 20231003
  Receipt Date: 20231103
  Transmission Date: 20240109
  Serious: Yes (Hospitalization)
  Sender: FDA-Public Use
  Company Number: FR-002147023-NVSC2023FR210904

PATIENT
  Age: 68 Year
  Sex: Male

DRUGS (3)
  1. TEGRETOL [Suspect]
     Active Substance: CARBAMAZEPINE
     Indication: Neuralgia
     Dosage: 200 MG, BID (2 TABLETS)
     Route: 065
     Dates: start: 201309, end: 202307
  2. TEGRETOL [Suspect]
     Active Substance: CARBAMAZEPINE
     Dosage: 400 MG, BID (2 TABLETS), (3 WEEKS AFTER)
     Route: 065
     Dates: start: 202307
  3. TEGRETOL [Suspect]
     Active Substance: CARBAMAZEPINE
     Dosage: 200 MG, QD (1TABLET) (2 DAYS AFTER STOP DATE)
     Route: 065

REACTIONS (7)
  - Cognitive disorder [Recovered/Resolved]
  - Erectile dysfunction [Recovered/Resolved]
  - Fall [Unknown]
  - Altered state of consciousness [Unknown]
  - Speech disorder [Unknown]
  - Overdose [Unknown]
  - Gait disturbance [Not Recovered/Not Resolved]

NARRATIVE: CASE EVENT DATE: 20230701
